FAERS Safety Report 18133350 (Version 5)
Quarter: 2020Q4

REPORT INFORMATION
  Report Type: Spontaneous
  Country: CH (occurrence: CH)
  Receive Date: 20200811
  Receipt Date: 20201218
  Transmission Date: 20210113
  Serious: Yes (Other)
  Sender: FDA-Public Use
  Company Number: CH-REGENERON PHARMACEUTICALS, INC.-2020-64113

PATIENT

DRUGS (3)
  1. EYLEA [Suspect]
     Active Substance: AFLIBERCEPT
     Dosage: Q4WK, LOWER 50 ?I INJECTION VOLUME
  2. EYLEA [Suspect]
     Active Substance: AFLIBERCEPT
     Indication: MACULAR OEDEMA
     Dosage: 0.05 ML, ONCE, RIGHT EYE
     Route: 031
     Dates: start: 20200625, end: 20200625
  3. EYLEA [Suspect]
     Active Substance: AFLIBERCEPT
     Indication: RETINAL VEIN OCCLUSION
     Dosage: 0.05 ML, ONCE
     Route: 031
     Dates: start: 20200528, end: 20200528

REACTIONS (8)
  - Intraocular pressure increased [Recovered/Resolved]
  - Off label use [Unknown]
  - Underdose [Unknown]
  - Device use issue [Unknown]
  - Amaurosis fugax [Recovered/Resolved]
  - Amaurosis fugax [Recovered/Resolved]
  - Intraocular pressure increased [Recovered/Resolved]
  - Device difficult to use [Unknown]

NARRATIVE: CASE EVENT DATE: 20200528
